FAERS Safety Report 20768233 (Version 4)
Quarter: 2023Q4

REPORT INFORMATION
  Report Type: Spontaneous
  Country: US (occurrence: US)
  Receive Date: 20220429
  Receipt Date: 20231219
  Transmission Date: 20240109
  Serious: Yes (Other)
  Sender: FDA-Public Use
  Company Number: US-TAKEDA-2022TUS028274

PATIENT
  Sex: Male
  Weight: 18.9 kg

DRUGS (8)
  1. VYVANSE [Suspect]
     Active Substance: LISDEXAMFETAMINE DIMESYLATE
     Indication: Abnormal behaviour
     Dosage: UNK
     Route: 065
     Dates: start: 202003
  2. VYVANSE [Suspect]
     Active Substance: LISDEXAMFETAMINE DIMESYLATE
     Indication: Attention deficit hyperactivity disorder
     Dosage: 1 DOSAGE FORM, QD
     Route: 048
  3. VYVANSE [Suspect]
     Active Substance: LISDEXAMFETAMINE DIMESYLATE
     Dosage: 10 MILLIGRAM
     Route: 065
  4. ACETAMINOPHEN [Concomitant]
     Active Substance: ACETAMINOPHEN
     Indication: Product used for unknown indication
     Dosage: 160 MILLIGRAM, QD
     Route: 048
  5. SILDENAFIL CITRATE [Concomitant]
     Active Substance: SILDENAFIL CITRATE
     Dosage: UNK
     Route: 065
  6. SNAPCEF [Concomitant]
     Dosage: UNK
     Route: 065
  7. RANIBIZUMAB [Concomitant]
     Active Substance: RANIBIZUMAB
     Dosage: UNK
     Route: 065
  8. FOCALIN XR [Concomitant]
     Active Substance: DEXMETHYLPHENIDATE HYDROCHLORIDE
     Dosage: UNK
     Route: 065

REACTIONS (13)
  - Provisional tic disorder [Unknown]
  - Tourette^s disorder [Unknown]
  - Visual impairment [Recovering/Resolving]
  - Pain [Unknown]
  - Mental disorder [Unknown]
  - Feeding disorder [Unknown]
  - Stress [Unknown]
  - Injury [Unknown]
  - Crying [Unknown]
  - Impaired quality of life [Unknown]
  - Insurance issue [Unknown]
  - Inability to afford medication [Unknown]
  - Myalgia [Unknown]
